FAERS Safety Report 9049548 (Version 1)
Quarter: 2013Q1

REPORT INFORMATION
  Report Type: Spontaneous
  Country: NO (occurrence: NO)
  Receive Date: 20130205
  Receipt Date: 20130205
  Transmission Date: 20140127
  Serious: Yes (Other)
  Sender: FDA-Public Use
  Company Number: NO-B.I. PHARMACEUTICALS,INC./RIDGEFIELD-2013-SW-00072NO

PATIENT
  Age: 55 Year
  Sex: Female

DRUGS (1)
  1. PRADAXA [Suspect]

REACTIONS (2)
  - Transient ischaemic attack [Recovered/Resolved]
  - Haematuria [Recovered/Resolved]
